FAERS Safety Report 7010315-9 (Version None)
Quarter: 2010Q3

REPORT INFORMATION
  Report Type: 
  Country: None (occurrence: None)
  Receive Date: 20100923
  Receipt Date: 20100915
  Transmission Date: 20110219
  Serious: Yes (Hospitalization)
  Sender: FDA-Public Use
  Company Number: B0663439A

PATIENT
  Sex: Female

DRUGS (4)
  1. VALTREX [Suspect]
     Indication: HERPES ZOSTER
     Dosage: 3000MG PER DAY
     Route: 048
     Dates: start: 20100623, end: 20100627
  2. FENAZOL [Concomitant]
     Indication: HERPES ZOSTER
     Route: 061
     Dates: start: 20100623, end: 20100627
  3. SODIUM BICARBONATE [Concomitant]
     Dosage: 1G PER DAY
     Route: 048
     Dates: start: 20100127, end: 20100627
  4. KREMEZIN [Concomitant]
     Dosage: 2G PER DAY
     Route: 048
     Dates: start: 20100127, end: 20100627

REACTIONS (6)
  - ALTERED STATE OF CONSCIOUSNESS [None]
  - BLOOD CREATININE INCREASED [None]
  - BLOOD UREA INCREASED [None]
  - DECREASED APPETITE [None]
  - DEPRESSED LEVEL OF CONSCIOUSNESS [None]
  - DYSARTHRIA [None]
